FAERS Safety Report 9877409 (Version 1)
Quarter: 2014Q1

REPORT INFORMATION
  Report Type: Spontaneous
  Country: US (occurrence: US)
  Receive Date: 20140206
  Receipt Date: 20140206
  Transmission Date: 20141002
  Serious: No
  Sender: FDA-Public Use
  Company Number: US-BAYER-2014-012440

PATIENT
  Age: 59 Year
  Sex: Female
  Weight: 91 kg

DRUGS (4)
  1. ALEVE TABLET [Suspect]
     Indication: BACK PAIN
     Dosage: 1 DF, ONCE
     Route: 048
     Dates: start: 20140120, end: 20140120
  2. DILANTIN [Concomitant]
  3. LEVOTHYROXINE [Concomitant]
  4. XANAX [Concomitant]

REACTIONS (5)
  - Oral discomfort [Recovered/Resolved]
  - Paraesthesia oral [Recovered/Resolved]
  - Lip disorder [Recovered/Resolved]
  - Antiinflammatory therapy [None]
  - Regurgitation [Recovered/Resolved]
